FAERS Safety Report 17709688 (Version 1)
Quarter: 2020Q2

REPORT INFORMATION
  Report Type: Report from Study
  Country: None (occurrence: MX)
  Receive Date: 20200427
  Receipt Date: 20200427
  Transmission Date: 20200714
  Serious: Yes (Hospitalization, Disabling)
  Sender: FDA-Public Use
  Company Number: MX-ABBVIE-20K-107-3380003-00

PATIENT
  Age: 52 Year
  Sex: Female
  Weight: 72 kg

DRUGS (1)
  1. HUMIRA [Suspect]
     Active Substance: ADALIMUMAB
     Indication: RHEUMATOID ARTHRITIS
     Route: 058
     Dates: end: 202001

REACTIONS (6)
  - Hip surgery [Unknown]
  - Tendon rupture [Unknown]
  - Swelling [Unknown]
  - Hypertension [Unknown]
  - Localised infection [Unknown]
  - Blood disorder [Unknown]

NARRATIVE: CASE EVENT DATE: 202002
